FAERS Safety Report 23695169 (Version 1)
Quarter: 2024Q2

REPORT INFORMATION
  Report Type: Spontaneous
  Country: US (occurrence: US)
  Receive Date: 20240402
  Receipt Date: 20240402
  Transmission Date: 20240716
  Serious: No
  Sender: FDA-Public Use
  Company Number: ENDG23-03185

PATIENT
  Sex: Female

DRUGS (1)
  1. HYDROXYUREA [Suspect]
     Active Substance: HYDROXYUREA
     Indication: Leukaemia
     Dosage: 5000 MG, WEEKLY
     Route: 065
     Dates: start: 20220826, end: 20230525

REACTIONS (5)
  - Pruritus [Unknown]
  - Gastrointestinal disorder [Unknown]
  - Gingival bleeding [Unknown]
  - Alopecia [Not Recovered/Not Resolved]
  - Off label use [Recovered/Resolved]

NARRATIVE: CASE EVENT DATE: 20220826
